FAERS Safety Report 4777995-X (Version None)
Quarter: 2005Q3

REPORT INFORMATION
  Report Type: 
  Country: None (occurrence: None)
  Receive Date: 20050921
  Receipt Date: 20050906
  Transmission Date: 20060218
  Serious: Yes (Death, Hospitalization)
  Sender: FDA-Public Use
  Company Number: EWC050945725

PATIENT
  Age: 51 Year
  Sex: Female

DRUGS (3)
  1. XIGRIS [Suspect]
     Indication: SEPSIS
     Dosage: 35.136 MG DAY
     Dates: start: 20050627, end: 20050630
  2. MIDAZOLAM [Concomitant]
  3. NOREPINEPHERINE [Concomitant]

REACTIONS (8)
  - CEREBRAL HAEMORRHAGE [None]
  - INTESTINAL PERFORATION [None]
  - LACTIC ACIDOSIS [None]
  - NECROTISING FASCIITIS [None]
  - RENAL FAILURE ACUTE [None]
  - RESPIRATORY FAILURE [None]
  - SEPTIC SHOCK [None]
  - THROMBOCYTOPENIA [None]
